FAERS Safety Report 9820782 (Version 1)
Quarter: 2014Q1

REPORT INFORMATION
  Report Type: Spontaneous
  Country: US (occurrence: None)
  Receive Date: 20140114
  Receipt Date: 20140114
  Transmission Date: 20141002
  Serious: Yes (Other)
  Sender: FDA-Public Use
  Company Number: None

PATIENT
  Age: 44 Year
  Sex: Male
  Weight: 74.84 kg

DRUGS (1)
  1. DULOXETINE [Suspect]
     Indication: DEPRESSION
     Dosage: TAKEN BY MOUTH
     Dates: start: 20131216, end: 20140112

REACTIONS (8)
  - Product substitution issue [None]
  - Mood altered [None]
  - Crying [None]
  - Asthenia [None]
  - Feeling abnormal [None]
  - Drug ineffective [None]
  - Back pain [None]
  - Movement disorder [None]
